FAERS Safety Report 10989076 (Version 1)
Quarter: 2015Q2

REPORT INFORMATION
  Report Type: Spontaneous
  Country: US (occurrence: US)
  Receive Date: 20150406
  Receipt Date: 20150406
  Transmission Date: 20150821
  Serious: Yes (Other)
  Sender: FDA-Public Use
  Company Number: US-UCBSA-2015009856

PATIENT

DRUGS (7)
  1. DILANTIN XR [Concomitant]
     Indication: EPILEPSY
     Dosage: 600 MG
  2. ATIVAN [Concomitant]
     Active Substance: LORAZEPAM
     Indication: EPILEPSY
     Dosage: 6 MG
  3. KEPPRA [Suspect]
     Active Substance: LEVETIRACETAM
     Indication: EPILEPSY
     Dosage: 3000 MG
  4. TRAMADOL [Concomitant]
     Active Substance: TRAMADOL
     Indication: EPILEPSY
     Dosage: 500 MG
  5. METHOCARBAMOL. [Concomitant]
     Active Substance: METHOCARBAMOL
     Indication: EPILEPSY
     Dosage: 2250 MG
  6. CANNABIS [Concomitant]
     Active Substance: CANNABIS SATIVA SUBSP. INDICA TOP
     Indication: EPILEPSY
     Dosage: DAILY
  7. TRAZODONE [Concomitant]
     Active Substance: TRAZODONE HYDROCHLORIDE
     Indication: EPILEPSY
     Dosage: 150 MG

REACTIONS (4)
  - Petit mal epilepsy [Unknown]
  - Cardiac disorder [Unknown]
  - Generalised tonic-clonic seizure [Unknown]
  - Adverse drug reaction [Unknown]
